FAERS Safety Report 8477461-4 (Version None)
Quarter: 2012Q2

REPORT INFORMATION
  Report Type: 
  Country: None (occurrence: None)
  Receive Date: 20120629
  Receipt Date: 20120623
  Transmission Date: 20120825
  Serious: Yes (Hospitalization, Other)
  Sender: FDA-Public Use
  Company Number: PHHY2012MX055346

PATIENT
  Sex: Male

DRUGS (2)
  1. EXFORGE HCT [Suspect]
     Indication: HYPERTENSION
     Dosage: 1 DF (320 MG VALS/10 MG AMLO/ 25 MG HCT), DAILY
     Dates: start: 20100601
  2. EXFORGE HCT [Suspect]
     Dosage: 1 DF (160 MG VALS/ 5 MG AMLO/ 12.5 MG HCT), DAILY
     Dates: start: 20120601

REACTIONS (2)
  - PERICARDITIS [None]
  - HYPOTENSION [None]
